FAERS Safety Report 20622075 (Version 1)
Quarter: 2022Q1

REPORT INFORMATION
  Report Type: Spontaneous
  Country: CN (occurrence: CN)
  Receive Date: 20220322
  Receipt Date: 20220322
  Transmission Date: 20220423
  Serious: Yes (Other)
  Sender: FDA-Public Use
  Company Number: CN-PFIZER INC-202200397484

PATIENT
  Age: 56 Year
  Sex: Male
  Weight: 56.5 kg

DRUGS (4)
  1. VFEND [Suspect]
     Active Substance: VORICONAZOLE
     Indication: Pneumonia
     Dosage: 200 MG, 2X/DAY (Q12H)
     Route: 041
     Dates: start: 20220223, end: 20220303
  2. MEROPENEM [Suspect]
     Active Substance: MEROPENEM
     Indication: Pneumonia
     Dosage: 1 G, 3X/DAY (Q8H)
     Route: 041
     Dates: start: 20220216, end: 20220310
  3. SODIUM CHLORIDE [Concomitant]
     Active Substance: SODIUM CHLORIDE
     Indication: Vehicle solution use
     Dosage: 100 ML, 3X/DAY (Q8H +  MEROPENEM INJECTION 1.0G)
     Route: 041
     Dates: start: 20220216, end: 20220310
  4. SODIUM CHLORIDE [Concomitant]
     Active Substance: SODIUM CHLORIDE
     Dosage: 100 ML, 2X/DAY (Q12H  MEROPENEM INJECTION 1.0G)
     Route: 041
     Dates: start: 20220223, end: 20220303

REACTIONS (2)
  - Drug-induced liver injury [Recovering/Resolving]
  - Drug level increased [Unknown]

NARRATIVE: CASE EVENT DATE: 20220225
